FAERS Safety Report 11159376 (Version 2)
Quarter: 2016Q1

REPORT INFORMATION
  Report Type: Spontaneous
  Country: US (occurrence: US)
  Receive Date: 20150603
  Receipt Date: 20160205
  Transmission Date: 20160525
  Serious: Yes (Other)
  Sender: FDA-Public Use
  Company Number: US-CELGENE-USA-2015055325

PATIENT

DRUGS (5)
  1. GEMCITABINE [Suspect]
     Active Substance: GEMCITABINE\GEMCITABINE HYDROCHLORIDE
     Indication: PANCREATIC CARCINOMA
     Route: 065
  2. PEGPH20 [Suspect]
     Active Substance: HYALURONIDASE RECOMBINANT HUMAN
     Route: 065
  3. PEGPH20 [Suspect]
     Active Substance: HYALURONIDASE RECOMBINANT HUMAN
     Indication: PANCREATIC CARCINOMA
     Route: 065
  4. ENOXAPARIN [Concomitant]
     Active Substance: ENOXAPARIN
     Indication: PROPHYLAXIS
  5. ABRAXANE [Suspect]
     Active Substance: PACLITAXEL
     Indication: PANCREATIC CARCINOMA
     Route: 065

REACTIONS (7)
  - Embolism [Unknown]
  - Neutropenia [Unknown]
  - Muscle spasms [Unknown]
  - Fatigue [Unknown]
  - Nausea [Unknown]
  - Anaemia [Unknown]
  - Oedema peripheral [Unknown]
